FAERS Safety Report 20592861 (Version 2)
Quarter: 2023Q1

REPORT INFORMATION
  Report Type: Other
  Country: SE (occurrence: SE)
  Receive Date: 20220315
  Receipt Date: 20230207
  Transmission Date: 20230417
  Serious: Yes (Other)
  Sender: FDA-Public Use
  Company Number: SE-DENTSPLY-2022SCDP000053

PATIENT
  Age: 71 Year
  Sex: Female

DRUGS (1)
  1. ORAQIX [Suspect]
     Active Substance: LIDOCAINE\PRILOCAINE
     Indication: Local anaesthesia
     Dosage: 1.7 GRAM TOTAL
     Dates: start: 20201127, end: 20201127

REACTIONS (4)
  - Administration site swelling [Recovering/Resolving]
  - Incorrect route of product administration [Recovering/Resolving]
  - Wrong product administered [Recovering/Resolving]
  - Hypoaesthesia [Recovering/Resolving]

NARRATIVE: CASE EVENT DATE: 20201127
